FAERS Safety Report 21472720 (Version 2)
Quarter: 2022Q4

REPORT INFORMATION
  Report Type: Spontaneous
  Country: US (occurrence: US)
  Receive Date: 20221018
  Receipt Date: 20221101
  Transmission Date: 20230113
  Serious: No
  Sender: FDA-Public Use
  Company Number: US-PFIZER INC-202201233063

PATIENT
  Age: 59 Year
  Sex: Male
  Weight: 76.19 kg

DRUGS (1)
  1. PAXLOVID [Suspect]
     Active Substance: NIRMATRELVIR\RITONAVIR
     Indication: COVID-19 treatment
     Dosage: 6 DF, DAILY
     Route: 048
     Dates: start: 20221007, end: 20221011

REACTIONS (3)
  - Dysgeusia [Not Recovered/Not Resolved]
  - COVID-19 [Not Recovered/Not Resolved]
  - Disease recurrence [Not Recovered/Not Resolved]

NARRATIVE: CASE EVENT DATE: 20221015
